FAERS Safety Report 5122686-9 (Version None)
Quarter: 2006Q4

REPORT INFORMATION
  Report Type: 
  Country: None (occurrence: None)
  Receive Date: 20061009
  Receipt Date: 20060503
  Transmission Date: 20070319
  Serious: Yes (Hospitalization)
  Sender: FDA-Public Use
  Company Number: FR-BAYER-200610410BFR

PATIENT
  Age: 59 Year
  Sex: Male

DRUGS (32)
  1. SORAFENIB [Suspect]
     Indication: RENAL CELL CARCINOMA STAGE UNSPECIFIED
     Dosage: TOTAL DAILY DOSE: 800 MG  UNIT DOSE: 200 MG
     Route: 048
     Dates: start: 20060307, end: 20060428
  2. SPASFON [Concomitant]
     Indication: ABDOMINAL PAIN
     Route: 048
     Dates: end: 20060401
  3. SPASFON [Concomitant]
     Route: 048
     Dates: start: 20060521, end: 20060523
  4. BIPERIDYS [Concomitant]
     Indication: ABDOMINAL PAIN
     Route: 048
     Dates: end: 20060401
  5. METEOSPASMYL [Concomitant]
     Indication: ABDOMINAL PAIN
     Route: 048
     Dates: end: 20060401
  6. EFFERALGAN CODEINE [Concomitant]
     Indication: ABDOMINAL PAIN
     Route: 048
     Dates: start: 20060404, end: 20060401
  7. DUPHALAC [Concomitant]
     Indication: CONSTIPATION
     Route: 048
     Dates: start: 20060429, end: 20060501
  8. IMOVANE [Concomitant]
     Indication: INSOMNIA
     Route: 048
     Dates: start: 20060430, end: 20060503
  9. LEXOMIL [Concomitant]
     Indication: ANXIETY
     Route: 048
     Dates: start: 20060427
  10. LUBENTYL [Concomitant]
     Indication: ABDOMINAL PAIN
     Dates: start: 20060401, end: 20060401
  11. OXYGEN [Concomitant]
     Indication: RESPIRATORY FAILURE
     Dates: start: 20060503, end: 20060629
  12. MUCOMYST [Concomitant]
     Indication: RESPIRATORY FAILURE
     Dates: start: 20060508, end: 20060516
  13. DOLIPRANE [Concomitant]
     Indication: PAIN
     Dates: start: 20060508, end: 20060519
  14. TOPALGIC [Concomitant]
     Indication: PAIN
     Dates: start: 20060519
  15. MOTILIUM [Concomitant]
     Indication: NAUSEA
     Dates: start: 20060508, end: 20060508
  16. OMEPRAZOLE [Concomitant]
     Indication: GASTROOESOPHAGEAL REFLUX PROPHYLAXIS
     Dates: start: 20060510
  17. ACETAMINOPHEN [Concomitant]
     Indication: PAIN
     Dates: start: 20060704
  18. ACETAMINOPHEN [Concomitant]
     Dates: start: 20060519, end: 20060521
  19. FORLAX [Concomitant]
     Indication: CONSTIPATION
     Dates: start: 20060702
  20. FORLAX [Concomitant]
     Dates: start: 20060523, end: 20060523
  21. KAYEXALATE [Concomitant]
     Indication: HYPERKALAEMIA
     Dates: start: 20060522, end: 20060524
  22. SOLUPRED [Concomitant]
     Indication: RESPIRATORY FAILURE
     Dates: start: 20060525
  23. SKENAN [Concomitant]
     Indication: PAIN
     Dates: start: 20060629, end: 20060707
  24. SCOBUREN [Concomitant]
     Indication: ABDOMINAL PAIN
     Dates: start: 20060629
  25. TARDYFERON [Concomitant]
     Indication: ANAEMIA
     Dates: start: 20060621, end: 20060601
  26. MORPHINE SULFATE [Concomitant]
     Indication: PAIN
     Dates: start: 20060629
  27. PRIMPERAN TAB [Concomitant]
     Indication: NAUSEA
     Dates: start: 20060703
  28. DEBRIDAT [Concomitant]
     Indication: ABDOMINAL PAIN
     Dates: start: 20060629
  29. ACUPAN [Concomitant]
     Indication: PAIN
     Dates: start: 20060629, end: 20060704
  30. LASIX [Concomitant]
     Indication: OEDEMA
     Dates: start: 20060703, end: 20060703
  31. CITALOPRAM HYDROBROMIDE [Concomitant]
     Indication: DEPRESSION
     Dates: start: 20060630, end: 20060702
  32. LACTULOSE [Concomitant]
     Indication: CONSTIPATION
     Dates: start: 20060630, end: 20060702

REACTIONS (13)
  - ANAEMIA [None]
  - ANXIETY [None]
  - ASCITES [None]
  - CONSTIPATION [None]
  - DYSPNOEA [None]
  - GAMMA-GLUTAMYLTRANSFERASE INCREASED [None]
  - GENERAL PHYSICAL HEALTH DETERIORATION [None]
  - INFLAMMATION [None]
  - IRON DEFICIENCY ANAEMIA [None]
  - PLATELET COUNT DECREASED [None]
  - PLEURAL EFFUSION [None]
  - PULMONARY EMBOLISM [None]
  - PULMONARY THROMBOSIS [None]
